FAERS Safety Report 5141406-5 (Version None)
Quarter: 2006Q4

REPORT INFORMATION
  Report Type: 
  Country: None (occurrence: None)
  Receive Date: 20061101
  Receipt Date: 20061025
  Transmission Date: 20070319
  Serious: Yes (Other)
  Sender: FDA-Public Use
  Company Number: GB-GLAXOSMITHKLINE-B0444603A

PATIENT
  Age: 64 Year
  Sex: Female

DRUGS (31)
  1. AMOXICILLIN [Suspect]
     Dosage: 500MG PER DAY
     Route: 048
     Dates: start: 20060531, end: 20060714
  2. AMITRIPTYLINE HYDROCHLORIDE [Concomitant]
     Dosage: 10MG PER DAY
     Route: 048
     Dates: start: 20060401
  3. ARNICA [Concomitant]
  4. CARBIMAZOLE [Concomitant]
     Dosage: 5MG TWICE PER DAY
     Route: 048
     Dates: start: 20060301
  5. CITALOPRAM HYDROBROMIDE [Concomitant]
     Route: 048
     Dates: start: 20030801
  6. CLARITHROMYCIN [Concomitant]
  7. CLOTRIMAZOLE [Concomitant]
     Route: 061
  8. EUPHRASIA [Concomitant]
     Route: 047
  9. FEXOFENADINE [Concomitant]
     Dosage: 180MG PER DAY
     Route: 048
     Dates: start: 20030501
  10. FLUCONAZOLE [Concomitant]
     Route: 048
  11. FLUTICASONE PROPIONATE [Concomitant]
     Route: 045
     Dates: start: 19940601
  12. FUROSEMIDE [Concomitant]
     Dosage: 40MG TWICE PER DAY
     Route: 048
     Dates: start: 20020701
  13. LISINOPRIL [Concomitant]
     Dosage: 20MG PER DAY
     Route: 048
     Dates: start: 20030301
  14. MORPHINE SUL INJ [Concomitant]
     Route: 048
     Dates: start: 20060701
  15. MUCODYNE [Concomitant]
     Dates: start: 20060401
  16. NEDOCROMIL SODIUM [Concomitant]
     Route: 047
     Dates: start: 20010501
  17. NUELIN SA [Concomitant]
     Route: 048
     Dates: start: 19930501
  18. NYSTATIN [Concomitant]
  19. OXYGEN [Concomitant]
  20. ACETAMINOPHEN [Concomitant]
     Dosage: 500MG AS REQUIRED
     Route: 048
     Dates: start: 20001101
  21. PREDNISOLONE [Concomitant]
  22. PROCHLORPERAZINE MALEATE [Concomitant]
  23. RISEDRONATE SODIUM [Concomitant]
     Dosage: 5MG PER DAY
     Route: 048
     Dates: start: 20021101
  24. SALBUTAMOL [Concomitant]
     Dosage: 200MCG FOUR TIMES PER DAY
     Route: 055
  25. SERETIDE [Concomitant]
     Route: 055
     Dates: start: 20020901
  26. SPIRIVA [Concomitant]
     Route: 055
     Dates: start: 20031201
  27. SPIRONOLACTONE [Concomitant]
     Dosage: 25MG PER DAY
     Route: 048
     Dates: start: 20060601
  28. TRAMADOL HCL [Concomitant]
     Dates: start: 20050801
  29. ACETAMINOPHEN W/ CODEINE [Concomitant]
     Route: 048
     Dates: start: 20040901
  30. VENTOLIN [Concomitant]
     Route: 055
     Dates: start: 20040301
  31. XYLOMETAZOLINE HYDROCHLORIDE [Concomitant]
     Route: 045

REACTIONS (3)
  - GAMMA-GLUTAMYLTRANSFERASE INCREASED [None]
  - HEPATITIS [None]
  - LIVER FUNCTION TEST ABNORMAL [None]
